FAERS Safety Report 8288185-0 (Version None)
Quarter: 2012Q2

REPORT INFORMATION
  Report Type: 
  Country: None (occurrence: None)
  Receive Date: 20120416
  Receipt Date: 20120402
  Transmission Date: 20120825
  Serious: Yes (Other)
  Sender: FDA-Public Use
  Company Number: FR-FRI-1000029759

PATIENT
  Age: 93 Year
  Sex: Female

DRUGS (2)
  1. ESCITALOPRAM [Suspect]
     Dosage: 15 MG
     Route: 048
  2. ESCITALOPRAM [Suspect]
     Indication: ANXIETY
     Dosage: 15 MG
     Route: 048

REACTIONS (4)
  - RENAL FAILURE [None]
  - DRUG DEPENDENCE [None]
  - WITHDRAWAL SYNDROME [None]
  - COGNITIVE DISORDER [None]
